FAERS Safety Report 25345324 (Version 2)
Quarter: 2025Q2

REPORT INFORMATION
  Report Type: Spontaneous
  Country: US (occurrence: US)
  Receive Date: 20250522
  Receipt Date: 20250609
  Transmission Date: 20250717
  Serious: Yes (Hospitalization, Other)
  Sender: BOEHRINGER INGELHEIM
  Company Number: US-Komodo Health-a23aa000007ZBkXAAW

PATIENT
  Sex: Female

DRUGS (1)
  1. CYLTEZO [Suspect]
     Active Substance: ADALIMUMAB-ADBM
     Indication: Product used for unknown indication

REACTIONS (3)
  - Epilepsy [Recovered/Resolved]
  - Accidental overdose [Recovered/Resolved]
  - Device malfunction [Recovered/Resolved]

NARRATIVE: CASE EVENT DATE: 20250501
